FAERS Safety Report 24987237 (Version 2)
Quarter: 2025Q3

REPORT INFORMATION
  Report Type: Spontaneous
  Country: US (occurrence: US)
  Receive Date: 20250219
  Receipt Date: 20250809
  Transmission Date: 20251021
  Serious: Yes (Hospitalization, Other)
  Sender: ALEXION PHARMACEUTICALS
  Company Number: US-AstraZeneca-CH-00807796A

PATIENT
  Sex: Male

DRUGS (1)
  1. FARXIGA [Suspect]
     Active Substance: DAPAGLIFLOZIN PROPANEDIOL
     Route: 065
     Dates: start: 202501, end: 202501

REACTIONS (5)
  - Blood pressure decreased [Unknown]
  - Dehydration [Unknown]
  - Rash [Unknown]
  - Urinary tract infection [Unknown]
  - Renal failure [Unknown]
